FAERS Safety Report 24278067 (Version 1)
Quarter: 2024Q3

REPORT INFORMATION
  Report Type: Spontaneous
  Country: FR (occurrence: FR)
  Receive Date: 20240903
  Receipt Date: 20240903
  Transmission Date: 20241017
  Serious: Yes (Other)
  Sender: AIRGAS
  Company Number: FR-AFSSAPS-AVNT2024000633

PATIENT
  Age: 17 Year
  Sex: Male

DRUGS (3)
  1. NITROUS OXIDE [Suspect]
     Active Substance: NITROUS OXIDE
     Indication: Product used for unknown indication
     Route: 055
  2. OXYGEN [Suspect]
     Active Substance: OXYGEN
     Route: 055
  3. METHADONE [Suspect]
     Active Substance: METHADONE HYDROCHLORIDE
     Route: 048

REACTIONS (1)
  - Drug dependence [Not Recovered/Not Resolved]
